FAERS Safety Report 7741605-X (Version None)
Quarter: 2011Q3

REPORT INFORMATION
  Report Type: 
  Country: None (occurrence: None)
  Receive Date: 20110909
  Receipt Date: 20110831
  Transmission Date: 20111222
  Serious: Yes (Other)
  Sender: FDA-Public Use
  Company Number: US-ASTRAZENECA-2011SE52722

PATIENT
  Sex: Female

DRUGS (4)
  1. SYMBICORT [Suspect]
     Route: 055
  2. DILTIAZEM [Concomitant]
  3. SPIRIVA [Concomitant]
  4. DIFIL G [Concomitant]

REACTIONS (7)
  - CHRONIC OBSTRUCTIVE PULMONARY DISEASE [None]
  - EAR DISORDER [None]
  - SINUS DISORDER [None]
  - MALAISE [None]
  - MULTIPLE ALLERGIES [None]
  - DRUG DOSE OMISSION [None]
  - DISCOMFORT [None]
